FAERS Safety Report 4943477-5 (Version None)
Quarter: 2006Q1

REPORT INFORMATION
  Report Type: 
  Country: None (occurrence: None)
  Receive Date: 20060309
  Receipt Date: 20060227
  Transmission Date: 20060701
  Serious: Yes (Other)
  Sender: FDA-Public Use
  Company Number: 2006029253

PATIENT
  Age: 6 Year
  Sex: Female
  Weight: 20.9 kg

DRUGS (4)
  1. HEPARIN SODIUM [Suspect]
     Indication: CEREBRAL HAEMATOMA
     Dosage: SEE IMAGE
     Route: 042
  2. DALTEPARIN SODIUM [Suspect]
     Indication: ILL-DEFINED DISORDER
  3. PHENYTOIN SODIUM CAP [Concomitant]
  4. RIFAMPICIN [Concomitant]

REACTIONS (12)
  - ACTIVATED PARTIAL THROMBOPLASTIN TIME SHORTENED [None]
  - BLINDNESS [None]
  - BLOOD THROMBIN INCREASED [None]
  - DRUG HYPERSENSITIVITY [None]
  - DRUG INEFFECTIVE [None]
  - HEPARIN-INDUCED THROMBOCYTOPENIA [None]
  - JUGULAR VEIN THROMBOSIS [None]
  - MENTAL STATUS CHANGES [None]
  - OEDEMA [None]
  - PULMONARY EMBOLISM [None]
  - SEPSIS [None]
  - SUPERIOR SAGITTAL SINUS THROMBOSIS [None]
